FAERS Safety Report 20004281 (Version 1)
Quarter: 2021Q4

REPORT INFORMATION
  Report Type: Spontaneous
  Country: IT (occurrence: IT)
  Receive Date: 20211028
  Receipt Date: 20211028
  Transmission Date: 20220303
  Serious: Yes (Other)
  Sender: FDA-Public Use
  Company Number: IT-009507513-2110ITA007707

PATIENT
  Age: 84 Year
  Sex: Female

DRUGS (1)
  1. STEGLATRO [Suspect]
     Active Substance: ERTUGLIFLOZIN PIDOLATE
     Indication: Diabetes mellitus
     Dosage: 5 MILLIGRAM, FOUR-FIVE DAYS AGO
     Route: 048
     Dates: start: 202110

REACTIONS (11)
  - Syncope [Unknown]
  - Dizziness [Unknown]
  - Nausea [Unknown]
  - Vomiting [Unknown]
  - Headache [Unknown]
  - Dysuria [Unknown]
  - Hyperhidrosis [Unknown]
  - Asthenia [Unknown]
  - Confusional state [Unknown]
  - Ill-defined disorder [Unknown]
  - Blood pressure decreased [Unknown]

NARRATIVE: CASE EVENT DATE: 20211001
